FAERS Safety Report 10008062 (Version 1)
Quarter: 2014Q1

REPORT INFORMATION
  Report Type: Spontaneous
  Country: US (occurrence: US)
  Receive Date: 20140313
  Receipt Date: 20140313
  Transmission Date: 20141002
  Serious: No
  Sender: FDA-Public Use
  Company Number: US-009507513-1402USA013385

PATIENT
  Age: 50 Year
  Sex: Female

DRUGS (5)
  1. CORICIDIN HBP COLD AND FLU [Suspect]
     Indication: OROPHARYNGEAL PAIN
     Dosage: UNK, UNKNOWN
     Route: 048
  2. CORICIDIN HBP COLD AND FLU [Suspect]
     Indication: RHINORRHOEA
  3. CORICIDIN HBP COLD AND FLU [Suspect]
     Indication: FEELING ABNORMAL
  4. CORICIDIN HBP COLD AND FLU [Suspect]
     Indication: PAIN
  5. CORICIDIN HBP COLD AND FLU [Suspect]
     Indication: NASAL CONGESTION

REACTIONS (1)
  - Drug ineffective for unapproved indication [Unknown]
